FAERS Safety Report 22636625 (Version 14)
Quarter: 2024Q3

REPORT INFORMATION
  Report Type: Report from Study
  Country: CA (occurrence: CA)
  Receive Date: 20230623
  Receipt Date: 20240916
  Transmission Date: 20241016
  Serious: Yes (Hospitalization, Other)
  Sender: NOVARTIS
  Company Number: CA-002147023-PHHY2016CA170205

PATIENT
  Age: 58 Year
  Sex: Female

DRUGS (35)
  1. SANDOSTATIN LAR DEPOT [Suspect]
     Active Substance: OCTREOTIDE ACETATE
     Indication: Carcinoid tumour
     Dosage: 30 MG, (EVERY 4 WEEKS)
     Route: 030
     Dates: start: 20170222
  2. SANDOSTATIN LAR DEPOT [Suspect]
     Active Substance: OCTREOTIDE ACETATE
     Dosage: 30 MG,  (EVERY 4 WEEKS)
     Route: 030
  3. SANDOSTATIN LAR DEPOT [Suspect]
     Active Substance: OCTREOTIDE ACETATE
     Dosage: 30 MG, (EVERY 4 WEEKS)
     Route: 030
  4. SANDOSTATIN LAR DEPOT [Suspect]
     Active Substance: OCTREOTIDE ACETATE
     Dosage: 30 MG, (EVERY 4 WEEKS)
     Route: 030
  5. SANDOSTATIN LAR DEPOT [Suspect]
     Active Substance: OCTREOTIDE ACETATE
     Dosage: 30 MG, QMO (EVERY 4 WEEKS)
     Route: 030
  6. SANDOSTATIN LAR DEPOT [Suspect]
     Active Substance: OCTREOTIDE ACETATE
     Dosage: 30 MG, QMO (EVERY 4 WEEKS
     Route: 030
  7. SANDOSTATIN LAR DEPOT [Suspect]
     Active Substance: OCTREOTIDE ACETATE
     Dosage: 30 MG, QMO (EVERY 4 WEEKS )
     Route: 030
  8. SANDOSTATIN LAR DEPOT [Suspect]
     Active Substance: OCTREOTIDE ACETATE
     Dosage: 30 MG, Q4W
     Route: 030
     Dates: start: 20240708
  9. SANDOSTATIN LAR DEPOT [Suspect]
     Active Substance: OCTREOTIDE ACETATE
     Dosage: 30 MG, Q4W (EVERY 4 WEEKS)
     Route: 030
     Dates: start: 20240902
  10. SANDOSTATIN [Suspect]
     Active Substance: OCTREOTIDE ACETATE
     Indication: Carcinoid tumour
     Dosage: 1 DOSAGE FORM, TID (STRENGTH: 100 MCG FOR ONE WEEK)
     Route: 058
     Dates: start: 20161205, end: 201612
  11. SANDOSTATIN [Suspect]
     Active Substance: OCTREOTIDE ACETATE
     Dosage: 1 DOSAGE FORM, BID (STRENGTH: 75 UG)
     Route: 058
     Dates: start: 20170124, end: 20170207
  12. SANDOSTATIN [Suspect]
     Active Substance: OCTREOTIDE ACETATE
     Dosage: 75 UG, TID
     Route: 058
     Dates: start: 2017, end: 2017
  13. SANDOSTATIN [Suspect]
     Active Substance: OCTREOTIDE ACETATE
     Dosage: 1 DOSAGE FORM, BID (STRENGTH: 100 UG)
     Route: 058
     Dates: start: 2017, end: 2017
  14. SANDOSTATIN [Suspect]
     Active Substance: OCTREOTIDE ACETATE
     Dosage: 1 DOSAGE FORM, TID (STRENGTH: 100 MCG FOR ONE WEEK) (START DATE:05 UNK 2016)
     Route: 058
     Dates: end: 2016
  15. SANDOSTATIN [Suspect]
     Active Substance: OCTREOTIDE ACETATE
     Dosage: 1 DOSAGE FORM, BID (STRENGTH: 100 MCG) (STOP DATE:07 UNK 2017)
     Route: 058
     Dates: start: 2017
  16. SANDOSTATIN [Suspect]
     Active Substance: OCTREOTIDE ACETATE
     Dosage: 1 DOSAGE FORM, BID (STRENGTH: 75 UG) (START DATE:24 UNK 2017)
     Route: 058
     Dates: end: 2017
  17. SANDOSTATIN [Suspect]
     Active Substance: OCTREOTIDE ACETATE
     Dosage: 30 MG 1 EVERY 1 MONTHS
     Route: 030
  18. SANDOSTATIN [Suspect]
     Active Substance: OCTREOTIDE ACETATE
     Dosage: 30 MG (BLOCKED X 2 INJECTION) (ASSOCIATED INJECTION)
     Route: 030
     Dates: start: 20240513
  19. SANDOSTATIN [Suspect]
     Active Substance: OCTREOTIDE ACETATE
     Dosage: 30 MG, Q4W (EVERY 4 WEEKS)
     Route: 030
  20. BISOPROLOL [Suspect]
     Active Substance: BISOPROLOL\BISOPROLOL FUMARATE
     Indication: Product used for unknown indication
     Dosage: UNK, BID
     Route: 048
  21. BISOPROLOL [Suspect]
     Active Substance: BISOPROLOL\BISOPROLOL FUMARATE
     Dosage: UNK
     Route: 048
  22. SIMVASTATIN [Suspect]
     Active Substance: SIMVASTATIN
     Indication: Arthralgia
     Dosage: 5 MG, Q12H
     Route: 065
  23. SIMVASTATIN [Suspect]
     Active Substance: SIMVASTATIN
     Indication: Renal pain
     Dosage: 5 MG, PRN
     Route: 065
  24. SIMVASTATIN [Suspect]
     Active Substance: SIMVASTATIN
     Indication: Renal pain
     Dosage: 5 MG, Q12H
     Route: 065
  25. SIMVASTATIN [Suspect]
     Active Substance: SIMVASTATIN
     Indication: Arthralgia
     Dosage: 5 MG
     Route: 065
  26. OCTREOTIDE ACETATE [Suspect]
     Active Substance: OCTREOTIDE ACETATE
     Indication: Carcinoid tumour
     Dosage: 2 EVERY 1 DAY
     Route: 058
  27. OCTREOTIDE ACETATE [Suspect]
     Active Substance: OCTREOTIDE ACETATE
     Dosage: 75 MG, 3 EVERY 1 DAYS
     Route: 058
  28. OCTREOTIDE ACETATE [Suspect]
     Active Substance: OCTREOTIDE ACETATE
     Dosage: UNK, 2 EVERY 1 DAYS
     Route: 058
  29. OCTREOTIDE ACETATE [Suspect]
     Active Substance: OCTREOTIDE ACETATE
     Dosage: UNK UNK, 3 EVERY 1 DAYS
     Route: 058
  30. DESOXIMETASONE [Concomitant]
     Active Substance: DESOXIMETASONE
     Indication: Product used for unknown indication
     Dosage: UNK
     Route: 065
  31. ASPIRIN [Concomitant]
     Active Substance: ASPIRIN
     Indication: Product used for unknown indication
     Dosage: 1 DF, QD
     Route: 048
  32. PANTOPRAZOLE SODIUM [Concomitant]
     Active Substance: PANTOPRAZOLE SODIUM
     Indication: Product used for unknown indication
     Dosage: 1 DF, BID, ENTERIC COATED TABLET
     Route: 048
  33. CORTISONE [Concomitant]
     Active Substance: CORTISONE
     Indication: Product used for unknown indication
     Dosage: UNK
     Route: 065
  34. ROSUVASTATIN [Concomitant]
     Active Substance: ROSUVASTATIN\ROSUVASTATIN CALCIUM
     Indication: Product used for unknown indication
     Dosage: 1 DF, QD
     Route: 048
  35. CIPRO [Concomitant]
     Active Substance: CIPROFLOXACIN HYDROCHLORIDE
     Indication: Urinary tract infection
     Dosage: UNK, BID (FOR 10 DAYS)
     Route: 042
     Dates: start: 20200706

REACTIONS (49)
  - Blood pressure increased [Unknown]
  - Diverticulitis [Not Recovered/Not Resolved]
  - Abdominal pain [Not Recovered/Not Resolved]
  - Pain [Recovered/Resolved]
  - Kidney infection [Unknown]
  - Pyrexia [Recovered/Resolved]
  - Pyrexia [Recovered/Resolved]
  - Nephrolithiasis [Not Recovered/Not Resolved]
  - Renal pain [Unknown]
  - Intestinal haemorrhage [Unknown]
  - Needle issue [Unknown]
  - Thrombosis [Unknown]
  - Pneumonia [Unknown]
  - Cough [Unknown]
  - Myalgia [Unknown]
  - Productive cough [Unknown]
  - Pulmonary pain [Unknown]
  - Back pain [Unknown]
  - Burning sensation [Unknown]
  - Weight decreased [Unknown]
  - Chills [Recovered/Resolved]
  - Feeling cold [Recovered/Resolved]
  - Hot flush [Unknown]
  - Feeling hot [Unknown]
  - Chills [Unknown]
  - Arthralgia [Recovered/Resolved]
  - Drug intolerance [Unknown]
  - Catheter site infection [Unknown]
  - Urine analysis abnormal [Unknown]
  - Urine odour abnormal [Unknown]
  - Urine viscosity increased [Unknown]
  - Eye inflammation [Unknown]
  - Visual impairment [Unknown]
  - Contusion [Unknown]
  - Fall [Unknown]
  - Procedural pain [Unknown]
  - Dizziness [Recovered/Resolved]
  - Nausea [Unknown]
  - Headache [Recovered/Resolved]
  - Diarrhoea [Recovered/Resolved]
  - Asthenia [Unknown]
  - Dizziness [Unknown]
  - Headache [Unknown]
  - Injection site haemorrhage [Unknown]
  - Injection site pain [Recovered/Resolved]
  - Injection site pain [Recovered/Resolved]
  - Presyncope [Unknown]
  - Throat tightness [Unknown]
  - Angina pectoris [Unknown]

NARRATIVE: CASE EVENT DATE: 20161205
